FAERS Safety Report 6172426-X (Version None)
Quarter: 2009Q2

REPORT INFORMATION
  Report Type: 
  Country: None (occurrence: None)
  Receive Date: 20090429
  Receipt Date: 20090422
  Transmission Date: 20091009
  Serious: Yes (Hospitalization, Other)
  Sender: FDA-Public Use
  Company Number: PL-BAXTER-2009BH007292

PATIENT
  Age: 44 Year
  Sex: Female
  Weight: 55 kg

DRUGS (5)
  1. IFOSFAMIDE [Suspect]
     Indication: CERVIX CARCINOMA
     Route: 048
     Dates: start: 20090209, end: 20090211
  2. UROMITEXAN BAXTER [Suspect]
     Indication: CERVIX CARCINOMA
     Route: 042
     Dates: start: 20090209, end: 20090211
  3. MS CONTIN [Suspect]
     Indication: CERVIX CARCINOMA
     Route: 042
     Dates: start: 20090101
  4. ATOSSA [Concomitant]
     Indication: DRUG USE FOR UNKNOWN INDICATION
     Route: 042
     Dates: start: 20090209, end: 20090211
  5. METOCLOPRAMIDE [Concomitant]
     Indication: DRUG USE FOR UNKNOWN INDICATION
     Route: 042

REACTIONS (5)
  - ALTERED STATE OF CONSCIOUSNESS [None]
  - COLD SWEAT [None]
  - CONFUSIONAL STATE [None]
  - MEMORY IMPAIRMENT [None]
  - PSYCHOMOTOR HYPERACTIVITY [None]
